FAERS Safety Report 8355891-9 (Version None)
Quarter: 2012Q2

REPORT INFORMATION
  Report Type: 
  Country: None (occurrence: None)
  Receive Date: 20120510
  Receipt Date: 20120427
  Transmission Date: 20120825
  Serious: Yes (Life-Threatening, Hospitalization)
  Sender: FDA-Public Use
  Company Number: 2012AP001252

PATIENT
  Age: 42 Year
  Sex: Female

DRUGS (12)
  1. SULFASALAZINE [Suspect]
     Indication: PRODUCT USED FOR UNKNOWN INDICATION
     Dosage: 500 MG; PO
     Route: 048
  2. NYSTATIN [Concomitant]
  3. OMEPRAZOLE [Suspect]
     Dosage: 20 MG; BID; PO
     Route: 048
  4. GABAPENTIN [Suspect]
     Dosage: 600 MG; QID; PO
     Route: 048
  5. VENLAFAXINE [Suspect]
     Dosage: 75 MG; PO; BID
     Route: 048
  6. HYDROXYCHLOROQUINE SULFATE [Suspect]
     Indication: RHEUMATOID ARTHRITIS
     Dosage: 400 MG; PO; QD
     Route: 048
  7. MICONAZOLE [Concomitant]
  8. FLOXACILLIN SODIUM [Concomitant]
  9. SCHERIPROCT (SCHERIPROCT N) [Concomitant]
  10. METHOTREXATE [Suspect]
     Indication: PRODUCT USED FOR UNKNOWN INDICATION
     Dosage: 25 MG; QW PO
     Route: 048
  11. BENZYDAMINE (BENZYDAMINE) [Concomitant]
  12. METRONIDAZOLE [Concomitant]

REACTIONS (6)
  - FULL BLOOD COUNT ABNORMAL [None]
  - CONTUSION [None]
  - THROMBOCYTOPENIA [None]
  - ABDOMINAL PAIN [None]
  - HAEMATEMESIS [None]
  - DIARRHOEA [None]
